FAERS Safety Report 14553303 (Version 1)
Quarter: 2018Q1

REPORT INFORMATION
  Report Type: Spontaneous
  Country: US (occurrence: US)
  Receive Date: 20180220
  Receipt Date: 20180220
  Transmission Date: 20180509
  Serious: No
  Sender: FDA-Public Use
  Company Number: US-IPSEN BIOPHARMACEUTICALS, INC.-2017-14613

PATIENT
  Sex: Female

DRUGS (6)
  1. DYSPORT [Suspect]
     Active Substance: ABOBOTULINUMTOXINA
     Indication: SKIN WRINKLING
     Dosage: 165 UNITS
     Route: 065
     Dates: start: 20170926, end: 20170926
  2. DYSPORT [Suspect]
     Active Substance: ABOBOTULINUMTOXINA
     Indication: SKIN WRINKLING
     Dosage: NOT REPORTED
     Route: 065
     Dates: start: 2017, end: 2017
  3. DYSPORT [Suspect]
     Active Substance: ABOBOTULINUMTOXINA
     Indication: SKIN WRINKLING
  4. DYSPORT [Suspect]
     Active Substance: ABOBOTULINUMTOXINA
     Indication: SKIN WRINKLING
  5. DYSPORT [Suspect]
     Active Substance: ABOBOTULINUMTOXINA
     Indication: OFF LABEL USE
  6. RESTYLANE LIFT [Suspect]
     Active Substance: HYALURONIC ACID\LIDOCAINE
     Indication: SKIN COSMETIC PROCEDURE
     Dates: start: 20170926, end: 20170926

REACTIONS (5)
  - Inappropriate schedule of drug administration [Unknown]
  - Product preparation error [Unknown]
  - Off label use [Unknown]
  - Drug ineffective [Unknown]
  - Overdose [Unknown]
